FAERS Safety Report 7508003-5 (Version None)
Quarter: 2011Q2

REPORT INFORMATION
  Report Type: 
  Country: None (occurrence: None)
  Receive Date: 20110527
  Receipt Date: 20110406
  Transmission Date: 20111010
  Serious: Yes (Other)
  Sender: FDA-Public Use
  Company Number: US-MYLANLABS-2011S1007414

PATIENT
  Age: 70 Year
  Sex: Male

DRUGS (9)
  1. DILANTIN [Concomitant]
     Dates: start: 19910101
  2. DILANTIN [Concomitant]
     Dates: start: 19910101
  3. AVAPRO [Concomitant]
  4. LIPITOR [Concomitant]
  5. KLONOPIN [Concomitant]
  6. MULTI-VITAMIN [Concomitant]
  7. LEVETIRACETAM [Suspect]
     Indication: CONVULSION
     Route: 048
     Dates: start: 20110101
  8. ASPIRIN [Concomitant]
  9. LEVETIRACETAM [Suspect]
     Route: 048
     Dates: start: 20110101

REACTIONS (2)
  - CONVULSION [None]
  - DRUG INEFFECTIVE [None]
